FAERS Safety Report 22265547 (Version 1)
Quarter: 2023Q2

REPORT INFORMATION
  Report Type: Spontaneous
  Country: US (occurrence: US)
  Receive Date: 20230428
  Receipt Date: 20230428
  Transmission Date: 20230721
  Serious: Yes (Hospitalization)
  Sender: FDA-Public Use
  Company Number: US-AMGEN-USASP2023068067

PATIENT
  Age: 76 Year
  Sex: Female

DRUGS (1)
  1. PROLIA [Suspect]
     Active Substance: DENOSUMAB
     Indication: Lumbar vertebral fracture
     Dosage: 60 MILLIGRAM, Q6MO
     Route: 065
     Dates: start: 202208, end: 20230414

REACTIONS (7)
  - Fatigue [Not Recovered/Not Resolved]
  - Headache [Not Recovered/Not Resolved]
  - Chills [Not Recovered/Not Resolved]
  - Hypersomnia [Not Recovered/Not Resolved]
  - Loss of personal independence in daily activities [Not Recovered/Not Resolved]
  - Abdominal discomfort [Not Recovered/Not Resolved]
  - Adverse reaction [Unknown]

NARRATIVE: CASE EVENT DATE: 20220101
